FAERS Safety Report 7080353-9 (Version None)
Quarter: 2010Q4

REPORT INFORMATION
  Report Type: 
  Country: None (occurrence: None)
  Receive Date: 20101103
  Receipt Date: 20101025
  Transmission Date: 20110411
  Serious: Yes (Hospitalization, Other)
  Sender: FDA-Public Use
  Company Number: US-JNJFOC-20100702897

PATIENT
  Sex: Female

DRUGS (4)
  1. LEVAQUIN [Suspect]
     Indication: BRONCHITIS
     Route: 065
  2. LEVAQUIN [Suspect]
     Indication: URINARY TRACT INFECTION
     Route: 065
  3. LEVAQUIN [Suspect]
     Indication: BACTERIAL INFECTION
     Route: 065
  4. CIPROFLOXACIN [Suspect]
     Indication: ILL-DEFINED DISORDER
     Route: 065

REACTIONS (3)
  - PERIARTHRITIS [None]
  - ROTATOR CUFF SYNDROME [None]
  - TENDONITIS [None]
